FAERS Safety Report 14121141 (Version 1)
Quarter: 2017Q4

REPORT INFORMATION
  Report Type: Spontaneous
  Country: US (occurrence: US)
  Receive Date: 20171024
  Receipt Date: 20171024
  Transmission Date: 20180321
  Serious: No
  Sender: FDA-Public Use
  Company Number: US-PERRIGO-17US002379

PATIENT
  Age: 72 Year
  Sex: Male
  Weight: 81.18 kg

DRUGS (7)
  1. BENAZEPRIL HCL [Concomitant]
     Active Substance: BENAZEPRIL HYDROCHLORIDE
     Indication: HYPERTENSION
     Dosage: UNKNOWN, UNKNOWN
     Route: 048
  2. IMIQUIMOD. [Suspect]
     Active Substance: IMIQUIMOD
     Indication: BASAL CELL CARCINOMA
     Dosage: ONE APPLICATION, EVERY OTHER DAY
     Route: 061
     Dates: start: 20170213, end: 20170217
  3. ASPIRIN                            /00002701/ [Concomitant]
     Active Substance: ASPIRIN
     Indication: PROPHYLAXIS
     Dosage: UNKNOWN, UNKNOWN
     Route: 048
  4. NIASPAN [Concomitant]
     Active Substance: NIACIN
     Indication: LOW DENSITY LIPOPROTEIN INCREASED
     Dosage: UNKNOWN, UNKNOWN
     Route: 065
  5. ZETIA [Concomitant]
     Active Substance: EZETIMIBE
     Indication: BLOOD CHOLESTEROL INCREASED
     Dosage: UNKNOWN, UNKNOWN
     Route: 048
  6. ATORVASTATIN [Concomitant]
     Active Substance: ATORVASTATIN
     Indication: BLOOD CHOLESTEROL INCREASED
     Dosage: UNKNOWN, UNKNOWN
     Route: 048
  7. IMIQUIMOD. [Suspect]
     Active Substance: IMIQUIMOD
     Dosage: ONE APPLICATION, EVERY OTHER DAY
     Route: 061
     Dates: start: 20170304

REACTIONS (4)
  - Application site haemorrhage [Recovering/Resolving]
  - Inappropriate schedule of drug administration [Not Recovered/Not Resolved]
  - Application site pain [Recovering/Resolving]
  - Application site erosion [Recovering/Resolving]

NARRATIVE: CASE EVENT DATE: 201702
